FAERS Safety Report 8179234-9 (Version None)
Quarter: 2012Q1

REPORT INFORMATION
  Report Type: 
  Country: None (occurrence: None)
  Receive Date: 20120227
  Receipt Date: 20120216
  Transmission Date: 20120608
  Serious: Yes (Other)
  Sender: FDA-Public Use
  Company Number: AUR-APL-2012-01092

PATIENT
  Sex: Female

DRUGS (2)
  1. GABAPENTIN [Suspect]
     Indication: DIABETIC NEUROPATHY
     Dosage: 3600 MG (1200 MG, 3 IN 1 D), TRANSPLACENTAL
     Route: 064
  2. MORPHINE SULFATE [Concomitant]

REACTIONS (5)
  - MATERNAL EXPOSURE DURING PREGNANCY [None]
  - DIABETIC KETOACIDOSIS [None]
  - CAESAREAN SECTION [None]
  - PYREXIA [None]
  - PREMATURE BABY [None]
